FAERS Safety Report 5569425-5 (Version None)
Quarter: 2007Q4

REPORT INFORMATION
  Report Type: 
  Country: None (occurrence: None)
  Receive Date: 20071220
  Receipt Date: 20070116
  Transmission Date: 20080405
  Serious: No
  Sender: FDA-Public Use
  Company Number: US-ABBOTT-07P-163-0356949-00

PATIENT
  Sex: Female

DRUGS (4)
  1. DILAUDID HP 10 MG/ML [Suspect]
     Indication: SALPINGO-OOPHORECTOMY
     Dosage: PCA PUMP; 05MG/CC (50CC BAG) .5CC WITH 7 MIN LOCKOUT (MIN) 10 MG Q 4 HOURS (MAX)
     Route: 042
     Dates: start: 20070110, end: 20070110
  2. DILAUDID HP 10 MG/ML [Suspect]
     Indication: EXPLORATIVE LAPAROTOMY
     Route: 042
     Dates: start: 20070110
  3. DILAUDID HP 10 MG/ML [Suspect]
     Indication: SURGERY
  4. DILAUDID HP 10 MG/ML [Suspect]
     Indication: HYSTERECTOMY

REACTIONS (1)
  - LETHARGY [None]
